FAERS Safety Report 17428244 (Version 1)
Quarter: 2020Q1

REPORT INFORMATION
  Report Type: Spontaneous
  Country: FR (occurrence: FR)
  Receive Date: 20200217
  Receipt Date: 20200217
  Transmission Date: 20200409
  Serious: Yes (Hospitalization)
  Sender: FDA-Public Use
  Company Number: FR-MYLANLABS-2020M1017776

PATIENT
  Age: 87 Year
  Sex: Male

DRUGS (3)
  1. MIRTAZAPINE. [Interacting]
     Active Substance: MIRTAZAPINE
     Indication: BURNOUT SYNDROME
     Dosage: 15 MILLIGRAM, QD
     Route: 048
     Dates: end: 20191115
  2. RISPERIDONE MYLAN 2 MG, COMPRIM? PELLICUL? S?CABLE [Suspect]
     Active Substance: RISPERIDONE
     Indication: BURNOUT SYNDROME
     Dosage: 2 MILLIGRAM, QD
     Route: 048
     Dates: end: 20191115
  3. TERALITHE [Interacting]
     Active Substance: LITHIUM CARBONATE
     Indication: BURNOUT SYNDROME
     Dosage: 400 MILLIGRAM, QD
     Route: 048
     Dates: end: 20191115

REACTIONS (2)
  - Drug interaction [Unknown]
  - Extrapyramidal disorder [Recovered/Resolved]

NARRATIVE: CASE EVENT DATE: 20191115
